FAERS Safety Report 19643409 (Version 1)
Quarter: 2021Q3

REPORT INFORMATION
  Report Type: Other
  Country: US (occurrence: US)
  Receive Date: 20210730
  Receipt Date: 20210730
  Transmission Date: 20211014
  Serious: Yes (Death)
  Sender: FDA-Public Use
  Company Number: US-B.BRAUN MEDICAL INC.-2114481

PATIENT
  Age: 17 Year
  Sex: Female

DRUGS (6)
  1. VITAMIN K [Concomitant]
     Active Substance: PHYTONADIONE
  2. ACETAMINOPHEN. [Concomitant]
     Active Substance: ACETAMINOPHEN
  3. EPINEPHRINE. [Concomitant]
     Active Substance: EPINEPHRINE
  4. FRESH FROZEN PLASMA [Concomitant]
     Active Substance: HUMAN PLASMA
  5. N?ACETYL CYSTEINE [Concomitant]
     Active Substance: ACETYLCYSTEINE
     Route: 042
  6. SODIUM CHLORIDE INJECTION USP 0264?7800?09 [Suspect]
     Active Substance: SODIUM CHLORIDE
     Indication: CSF PRESSURE

REACTIONS (1)
  - Drug ineffective [None]
